FAERS Safety Report 15435641 (Version 1)
Quarter: 2018Q3

REPORT INFORMATION
  Report Type: Spontaneous
  Country: US (occurrence: US)
  Receive Date: 20180927
  Receipt Date: 20180927
  Transmission Date: 20181010
  Serious: No
  Sender: FDA-Public Use
  Company Number: US-SHIRE-US201836872

PATIENT
  Sex: Female

DRUGS (2)
  1. NATPARA (PARATHYROID HORMONE) [Suspect]
     Active Substance: PARATHYROID HORMONE
     Indication: HYPOPARATHYROIDISM
     Dosage: 50 ?G, 1X/DAY:QD
     Route: 058
     Dates: start: 20180830
  2. CITRICAL [Concomitant]
     Active Substance: CALCIUM CITRATE
     Indication: PRODUCT USED FOR UNKNOWN INDICATION

REACTIONS (7)
  - Malaise [Unknown]
  - Fatigue [Unknown]
  - Injection site haemorrhage [Unknown]
  - Muscle spasms [Recovered/Resolved]
  - Constipation [Recovered/Resolved]
  - Injury associated with device [Unknown]
  - Injection site pain [Unknown]
